FAERS Safety Report 17238520 (Version 3)
Quarter: 2020Q1

REPORT INFORMATION
  Report Type: Report from Study
  Country: US (occurrence: US)
  Receive Date: 20200106
  Receipt Date: 20200123
  Transmission Date: 20200409
  Serious: Yes (Life-Threatening, Other)
  Sender: FDA-Public Use
  Company Number: US-GILEAD-2020-0445123

PATIENT
  Age: 51 Year
  Sex: Male
  Weight: 66 kg

DRUGS (15)
  1. BETAMETHASONE DIPROPIONATE AUGMENTED [Concomitant]
     Active Substance: BETAMETHASONE DIPROPIONATE
     Dosage: UNK,OTHER,OTHER
     Route: 061
     Dates: start: 20191113
  2. CALCIUM CARBONATE. [Concomitant]
     Active Substance: CALCIUM CARBONATE
     Dosage: 1000,MG,AS NECESSARY
     Route: 048
     Dates: start: 20191203, end: 20191203
  3. AXICABTAGENE CILOLEUCEL [Suspect]
     Active Substance: AXICABTAGENE CILOLEUCEL
     Indication: MARGINAL ZONE LYMPHOMA
     Dosage: UNK
     Route: 042
     Dates: start: 20191227, end: 20191227
  4. CYCLOPHOSPHAMIDE. [Suspect]
     Active Substance: CYCLOPHOSPHAMIDE
     Indication: BONE MARROW CONDITIONING REGIMEN
     Dosage: 500
     Route: 042
     Dates: start: 20191222, end: 20191224
  5. OXYCODONE [Concomitant]
     Active Substance: OXYCODONE
     Dosage: 5,MG,OTHER
     Route: 048
     Dates: start: 20190828
  6. ATORVASTATIN [Concomitant]
     Active Substance: ATORVASTATIN
     Dosage: 40,MG,DAILY
     Route: 048
     Dates: start: 20190828
  7. FLUTICASONE PROPIONATE AND SALMETEROL [Concomitant]
     Active Substance: FLUTICASONE PROPIONATE\SALMETEROL XINAFOATE
     Dosage: 1,OTHER,TWICE DAILY
     Route: 055
     Dates: start: 20190828
  8. OMEPRAZOLE. [Concomitant]
     Active Substance: OMEPRAZOLE
     Dosage: 20,MG,DAILY
     Route: 048
     Dates: start: 20191120
  9. CLOBETASOL [Concomitant]
     Active Substance: CLOBETASOL
     Dosage: UNK,OTHER,OTHER
     Route: 061
     Dates: start: 20190828
  10. MONTELUKAST [Concomitant]
     Active Substance: MONTELUKAST SODIUM
     Dosage: 10,MG,DAILY
     Route: 048
     Dates: start: 20190828
  11. TIOTROPIUM [Concomitant]
     Active Substance: TIOTROPIUM
     Dosage: 18,UG,DAILY
     Route: 055
     Dates: start: 20190828
  12. ONDANSETRON [Concomitant]
     Active Substance: ONDANSETRON
     Dosage: 8,MG,THREE TIMES DAILY
     Route: 048
     Dates: start: 20190828
  13. ACETAMINOPHEN. [Concomitant]
     Active Substance: ACETAMINOPHEN
     Dosage: 650,MG,DAILY
     Route: 048
     Dates: start: 20191203, end: 20191203
  14. ESCITALOPRAM [Concomitant]
     Active Substance: ESCITALOPRAM OXALATE
     Dosage: 20,MG,DAILY
     Route: 048
     Dates: start: 20190828
  15. FLUDARABINE [Suspect]
     Active Substance: FLUDARABINE PHOSPHATE
     Indication: BONE MARROW CONDITIONING REGIMEN
     Dosage: 30
     Route: 042
     Dates: start: 20191222, end: 20191224

REACTIONS (2)
  - Tracheal obstruction [Recovered/Resolved]
  - Cytokine release syndrome [Recovered/Resolved]

NARRATIVE: CASE EVENT DATE: 20191228
